FAERS Safety Report 5976069-X (Version None)
Quarter: 2008Q4

REPORT INFORMATION
  Report Type: 
  Country: None (occurrence: None)
  Receive Date: 20081202
  Receipt Date: 20081121
  Transmission Date: 20090506
  Serious: Yes (Hospitalization, Other)
  Sender: FDA-Public Use
  Company Number: US-ROCHE-585459

PATIENT
  Sex: Female
  Weight: 49.4 kg

DRUGS (4)
  1. CAPECITABINE [Suspect]
     Indication: COLORECTAL CANCER
     Dosage: THERAPY WAS HELD
     Route: 065
     Dates: start: 20080731
  2. CAPECITABINE [Suspect]
     Route: 065
  3. OXALIPLATIN [Suspect]
     Indication: COLORECTAL CANCER
     Dosage: THERAPY WAS HELD
     Route: 042
  4. OXALIPLATIN [Suspect]
     Route: 042

REACTIONS (5)
  - DEHYDRATION [None]
  - DIPLOPIA [None]
  - DISEASE PROGRESSION [None]
  - HYPOAESTHESIA [None]
  - THROAT TIGHTNESS [None]
